FAERS Safety Report 9319096 (Version 1)
Quarter: 2013Q2

REPORT INFORMATION
  Report Type: Spontaneous
  Country: US (occurrence: US)
  Receive Date: 20130530
  Receipt Date: 20130530
  Transmission Date: 20140414
  Serious: Yes (Death, Other)
  Sender: FDA-Public Use
  Company Number: US-PFIZER INC-2013163984

PATIENT
  Age: 58 Year
  Sex: Male

DRUGS (2)
  1. RAPAMUNE [Suspect]
     Indication: RENAL TRANSPLANT
     Dosage: 1 MG, 3X/DAY
  2. RAPAMUNE [Suspect]
     Indication: PANCREAS TRANSPLANT

REACTIONS (2)
  - Myocardial infarction [Fatal]
  - Off label use [Unknown]
